FAERS Safety Report 8097433-1 (Version None)
Quarter: 2012Q1

REPORT INFORMATION
  Report Type: 
  Country: None (occurrence: None)
  Receive Date: 20120128
  Receipt Date: 20110711
  Transmission Date: 20120608
  Serious: No
  Sender: FDA-Public Use
  Company Number: US-ABBOTT-11P-163-0838100-00

PATIENT
  Age: 75 Year
  Sex: Female

DRUGS (9)
  1. ALLEGRA [Concomitant]
     Indication: HYPERSENSITIVITY
  2. METHOTREXATE [Concomitant]
     Indication: PRODUCT USED FOR UNKNOWN INDICATION
     Dosage: 2 ON MONDAY AND 2 ON FRIDAY
  3. PROLIA [Concomitant]
     Indication: OSTEOPOROSIS
     Route: 050
  4. TOPROL-XL [Concomitant]
     Indication: CARDIAC DISORDER
     Dosage: DAILY
  5. FOLIC ACID [Concomitant]
     Indication: PRODUCT USED FOR UNKNOWN INDICATION
     Dosage: DAILY
  6. HUMIRA [Suspect]
     Indication: RHEUMATOID ARTHRITIS
     Dates: start: 20101201
  7. RAMIPRIL [Concomitant]
     Indication: CARDIAC DISORDER
     Dosage: DAILY
  8. NEURONTIN [Concomitant]
     Indication: NERVE INJURY
  9. ASPIRIN [Concomitant]
     Indication: PRODUCT USED FOR UNKNOWN INDICATION

REACTIONS (1)
  - INJECTION SITE PAIN [None]
